FAERS Safety Report 7552301-6 (Version None)
Quarter: 2011Q2

REPORT INFORMATION
  Report Type: 
  Country: None (occurrence: None)
  Receive Date: 20110616
  Receipt Date: 20110531
  Transmission Date: 20111010
  Serious: No
  Sender: FDA-Public Use
  Company Number: US-B.I. PHARMACEUTICALS,INC./RIDGEFIELD-2011-BP-03363BP

PATIENT
  Age: 70 Year
  Sex: Female

DRUGS (8)
  1. PRADAXA [Suspect]
     Indication: ATRIAL FIBRILLATION
     Dosage: 300 MG
     Route: 048
     Dates: start: 20110201
  2. PRADAXA [Suspect]
     Indication: TACHYCARDIA
  3. PRILOSEC [Concomitant]
     Indication: GASTROOESOPHAGEAL REFLUX DISEASE
     Dosage: 20 MG
     Route: 048
     Dates: start: 20000101
  4. OMEPRAZOLE [Concomitant]
     Dosage: 20 MG
  5. VITAMIN D [Concomitant]
     Indication: BONE DISORDER
     Route: 048
     Dates: start: 20080101
  6. SYNTHROID [Concomitant]
     Indication: THYROID DISORDER
     Dosage: 137 MCG
     Route: 048
  7. GINGER ROD [Concomitant]
     Indication: ANALGESIC INTERVENTION SUPPORTIVE THERAPY
     Dosage: 2200 MG
     Route: 048
  8. ALPRAZOLAM [Concomitant]

REACTIONS (7)
  - CHEST DISCOMFORT [None]
  - ABDOMINAL PAIN UPPER [None]
  - NAUSEA [None]
  - CHEST PAIN [None]
  - BURNING SENSATION [None]
  - FEELING ABNORMAL [None]
  - DIZZINESS [None]
